FAERS Safety Report 24010083 (Version 2)
Quarter: 2024Q3

REPORT INFORMATION
  Report Type: Report from Study
  Country: CA (occurrence: CA)
  Receive Date: 20240625
  Receipt Date: 20240710
  Transmission Date: 20241016
  Serious: Yes (Other)
  Sender: NOVARTIS
  Company Number: CA-002147023-NVSC2024CA131596

PATIENT
  Age: 34 Year
  Sex: Female

DRUGS (1)
  1. FINGOLIMOD [Suspect]
     Active Substance: FINGOLIMOD
     Indication: Relapsing-remitting multiple sclerosis
     Dosage: 0.5 MG, QD
     Route: 048
     Dates: start: 20170302

REACTIONS (6)
  - Multiple sclerosis relapse [Unknown]
  - Multiple sclerosis [Unknown]
  - Immunosuppression [Unknown]
  - Trigeminal neuralgia [Unknown]
  - Lymphocyte count decreased [Unknown]
  - Lymphopenia [Recovered/Resolved]

NARRATIVE: CASE EVENT DATE: 20231023
